FAERS Safety Report 7714160-8 (Version None)
Quarter: 2011Q3

REPORT INFORMATION
  Report Type: 
  Country: None (occurrence: None)
  Receive Date: 20110829
  Receipt Date: 20110819
  Transmission Date: 20111222
  Serious: Yes (Hospitalization)
  Sender: FDA-Public Use
  Company Number: 2007BI012999

PATIENT
  Age: 52 Year
  Sex: Male
  Weight: 92 kg

DRUGS (4)
  1. TYLENOL-500 [Concomitant]
     Indication: PAIN
  2. AVONEX [Suspect]
     Indication: MULTIPLE SCLEROSIS
     Route: 030
     Dates: start: 19980201, end: 20030801
  3. BACLOFEN [Concomitant]
     Indication: MUSCLE SPASMS
  4. AVONEX [Suspect]
     Route: 030
     Dates: start: 20030801

REACTIONS (5)
  - CYSTITIS [None]
  - PROSTATOMEGALY [None]
  - CONVULSION [None]
  - FALL [None]
  - PYREXIA [None]
